FAERS Safety Report 6354463-5 (Version None)
Quarter: 2009Q3

REPORT INFORMATION
  Report Type: 
  Country: None (occurrence: None)
  Receive Date: 20090910
  Receipt Date: 20090901
  Transmission Date: 20100115
  Serious: Yes (Hospitalization)
  Sender: FDA-Public Use
  Company Number: WAES 0904USA02897

PATIENT
  Age: 69 Year
  Sex: Male

DRUGS (7)
  1. ZETIA [Suspect]
     Indication: HYPERCHOLESTEROLAEMIA
     Dosage: 10 MG/DAILY PO
     Route: 048
     Dates: start: 20081113
  2. ASPIRIN [Concomitant]
  3. CALCITRIOL [Concomitant]
  4. FAMOTIDINE [Concomitant]
  5. FENOFIBRATE [Concomitant]
  6. IFENPRODIL TARTRATE [Concomitant]
  7. TAMSULOSIN HYDROCHLORIDE [Concomitant]

REACTIONS (7)
  - BACK PAIN [None]
  - BLOOD TRIGLYCERIDES INCREASED [None]
  - BUNDLE BRANCH BLOCK RIGHT [None]
  - CORONARY ARTERY STENOSIS [None]
  - ELECTROCARDIOGRAM T WAVE INVERSION [None]
  - LOW DENSITY LIPOPROTEIN INCREASED [None]
  - PRINZMETAL ANGINA [None]
